FAERS Safety Report 22646501 (Version 1)
Quarter: 2023Q2

REPORT INFORMATION
  Report Type: Spontaneous
  Country: US (occurrence: US)
  Receive Date: 20230627
  Receipt Date: 20230627
  Transmission Date: 20230722
  Serious: Yes (Other)
  Sender: FDA-Public Use
  Company Number: US-JNJFOC-20230651583

PATIENT
  Age: 3 Year
  Sex: Male

DRUGS (3)
  1. TYLENOL REGULAR STRENGTH [Suspect]
     Active Substance: ACETAMINOPHEN
     Indication: Pelvic pain
     Dosage: 3-6 TIMES PER WEEK, USED IN SECOND AND THIRD TRIMESTER
     Route: 064
     Dates: start: 201807, end: 201901
  2. TYLENOL EXTRA STRENGTH [Suspect]
     Active Substance: ACETAMINOPHEN
     Indication: Pelvic pain
     Dosage: 3-6 TIMES PER WEEK, USED IN SECOND AND THIRD TRIMESTER
     Route: 064
     Dates: start: 201807, end: 201901
  3. ACETAMINOPHEN [Suspect]
     Active Substance: ACETAMINOPHEN
     Indication: Pelvic pain
     Dosage: 3-6 TIMES PER WEEK, USED IN SECOND AND THIRD TRIMESTER
     Route: 064
     Dates: start: 201807, end: 201901

REACTIONS (2)
  - Autism spectrum disorder [Unknown]
  - Foetal exposure during pregnancy [Unknown]

NARRATIVE: CASE EVENT DATE: 20220719
